FAERS Safety Report 7425498-6 (Version None)
Quarter: 2011Q2

REPORT INFORMATION
  Report Type: 
  Country: None (occurrence: None)
  Receive Date: 20110412
  Receipt Date: 20110330
  Transmission Date: 20111010
  Serious: Yes (Life-Threatening, Other)
  Sender: FDA-Public Use
  Company Number: 029106

PATIENT
  Sex: Female
  Weight: 60 kg

DRUGS (3)
  1. LACOSAMIDE [Suspect]
     Indication: PARTIAL SEIZURES
     Dosage: (50 MG BID ORAL)
     Route: 048
     Dates: start: 20101004, end: 20101011
  2. ANTIEPILEPTICS [Concomitant]
  3. LAMICTAL [Concomitant]

REACTIONS (4)
  - HALLUCINATION, AUDITORY [None]
  - INTENTIONAL SELF-INJURY [None]
  - STAB WOUND [None]
  - SUICIDE ATTEMPT [None]
